FAERS Safety Report 5767185-6 (Version None)
Quarter: 2008Q2

REPORT INFORMATION
  Report Type: 
  Country: None (occurrence: None)
  Receive Date: 20080611
  Receipt Date: 20080606
  Transmission Date: 20081010
  Serious: No
  Sender: FDA-Public Use
  Company Number: APP200800483

PATIENT
  Age: 77 Year
  Sex: Male

DRUGS (3)
  1. HEPARIN SODIUM INJECTION [Suspect]
     Indication: HAEMODIALYSIS
     Dosage: 2000 USP UNITS, ONCE, INTRAVENOUS
     Route: 042
     Dates: start: 20080602, end: 20080602
  2. BAXTER HIGH ULTRAFILTRATION 1500 HEMODIALYSIS INSTRUMENT [Suspect]
     Indication: HAEMODIALYSIS
  3. METOPROLOL [Concomitant]

REACTIONS (4)
  - BLOOD PRESSURE DECREASED [None]
  - CONVULSION [None]
  - DEVICE MALFUNCTION [None]
  - VOMITING [None]
